FAERS Safety Report 10299412 (Version 2)
Quarter: 2014Q3

REPORT INFORMATION
  Report Type: Spontaneous
  Country: US (occurrence: US)
  Receive Date: 20140711
  Receipt Date: 20140722
  Transmission Date: 20150326
  Serious: Yes (Hospitalization)
  Sender: FDA-Public Use
  Company Number: US-JNJFOC-20140707103

PATIENT
  Age: 89 Year
  Sex: Male
  Weight: 61 kg

DRUGS (1)
  1. IMBRUVICA [Suspect]
     Active Substance: IBRUTINIB
     Indication: CHRONIC LYMPHOCYTIC LEUKAEMIA
     Route: 048
     Dates: start: 20140620

REACTIONS (5)
  - Diarrhoea [Unknown]
  - Haemoptysis [Recovered/Resolved]
  - Fatigue [Unknown]
  - Haemoglobin decreased [Unknown]
  - Overdose [Unknown]

NARRATIVE: CASE EVENT DATE: 201406
